FAERS Safety Report 24450475 (Version 1)
Quarter: 2024Q4

REPORT INFORMATION
  Report Type: Spontaneous
  Country: US (occurrence: None)
  Receive Date: 20241016
  Receipt Date: 20241016
  Transmission Date: 20250115
  Serious: Yes (Other)
  Sender: Public
  Company Number: None

PATIENT
  Age: 42 Year
  Sex: Female
  Weight: 133.2 kg

DRUGS (2)
  1. MONISTAT 7 [Suspect]
     Active Substance: MICONAZOLE NITRATE
     Indication: Fungal infection
     Dosage: OTHER QUANTITY : 7 7;?FREQUENCY : AT BEDTIME;?
     Route: 067
     Dates: start: 20241015
  2. METFORMIN [Concomitant]
     Active Substance: METFORMIN HYDROCHLORIDE

REACTIONS (4)
  - Application site pain [None]
  - Vulvovaginal burning sensation [None]
  - Application site pruritus [None]
  - Vulvovaginal pruritus [None]

NARRATIVE: CASE EVENT DATE: 20241015
